FAERS Safety Report 21888069 (Version 2)
Quarter: 2023Q2

REPORT INFORMATION
  Report Type: Spontaneous
  Country: IN (occurrence: IN)
  Receive Date: 20230120
  Receipt Date: 20230418
  Transmission Date: 20230721
  Serious: Yes (Other)
  Sender: FDA-Public Use
  Company Number: IN-CIPLA LTD.-2023IN00281

PATIENT

DRUGS (25)
  1. POMALIDOMIDE [Suspect]
     Active Substance: POMALIDOMIDE
     Indication: Plasma cell myeloma
     Dosage: UNK (UNKNOWN ROUTE)
     Dates: start: 2017, end: 201708
  2. POMALIDOMIDE [Suspect]
     Active Substance: POMALIDOMIDE
     Dosage: UNK (UNKNOWN ROUTE)
     Dates: start: 2020, end: 202009
  3. LENALIDOMIDE [Suspect]
     Active Substance: LENALIDOMIDE
     Indication: Plasma cell myeloma
     Dosage: UNK (UNKNOWN ROUTE)
     Dates: start: 2016, end: 201701
  4. LENALIDOMIDE [Suspect]
     Active Substance: LENALIDOMIDE
     Dosage: UNK (UNKNOWN ROUTE)
     Dates: end: 201906
  5. LENALIDOMIDE [Suspect]
     Active Substance: LENALIDOMIDE
     Dosage: UNK, MAINTENANCE (UNKNOWN ROUTE)
     Dates: start: 2019
  6. LENALIDOMIDE [Suspect]
     Active Substance: LENALIDOMIDE
     Dosage: UNK (UNKNOWN ROUTE)
     Dates: start: 202112, end: 202206
  7. DOXORUBICIN HYDROCHLORIDE [Suspect]
     Active Substance: DOXORUBICIN HYDROCHLORIDE
     Indication: Plasma cell myeloma
     Dosage: UNK (UNKNOWN ROUTE)
     Dates: start: 201801, end: 201809
  8. BORTEZOMIB [Suspect]
     Active Substance: BORTEZOMIB
     Indication: Plasma cell myeloma
     Dosage: UNK, 16 CYCLES (UNKNOWN ROUTE)
     Dates: start: 2015, end: 201603
  9. CARFILZOMIB [Suspect]
     Active Substance: CARFILZOMIB
     Indication: Plasma cell myeloma
     Dosage: UNK (UNKNOWN ROUTE)
     Dates: start: 20171003, end: 20171220
  10. CARFILZOMIB [Suspect]
     Active Substance: CARFILZOMIB
     Dosage: UNK (UNKNOWN ROUTE)
     Dates: start: 202003, end: 202005
  11. DARATUMUMAB [Suspect]
     Active Substance: DARATUMUMAB
     Indication: Plasma cell myeloma
     Dosage: UNK (UNKNOWN ROUTE)
     Dates: start: 201810
  12. BENDAMUSTINE [Suspect]
     Active Substance: BENDAMUSTINE
     Indication: Plasma cell myeloma
     Dosage: UNK (UNKNOWN ROUTE)
     Dates: start: 202010, end: 202104
  13. DEXAMETHASONE [Suspect]
     Active Substance: DEXAMETHASONE
     Indication: Plasma cell myeloma
     Dosage: UNK, 16 CYCLES (UNKNOWN ROUTE)
     Dates: start: 2015, end: 201603
  14. DEXAMETHASONE [Suspect]
     Active Substance: DEXAMETHASONE
     Dosage: UNK (UNKNOWN ROUTE)
     Dates: start: 2016, end: 201701
  15. DEXAMETHASONE [Suspect]
     Active Substance: DEXAMETHASONE
     Dosage: UNK (UNKNOWN ROUTE)
     Dates: start: 2017, end: 201708
  16. DEXAMETHASONE [Suspect]
     Active Substance: DEXAMETHASONE
     Dosage: UNK (UNKNOWN ROUTE)
     Dates: start: 20171003, end: 20171220
  17. DEXAMETHASONE [Suspect]
     Active Substance: DEXAMETHASONE
     Dosage: UNK (UNKNOWN ROUTE)
     Dates: start: 201801, end: 201809
  18. DEXAMETHASONE [Suspect]
     Active Substance: DEXAMETHASONE
     Dosage: UNK (UNKNOWN ROUTE)
     Dates: start: 202003, end: 202005
  19. DEXAMETHASONE [Suspect]
     Active Substance: DEXAMETHASONE
     Dosage: UNK (UNKNOWN ROUTE)
     Dates: start: 2020, end: 202009
  20. DEXAMETHASONE [Suspect]
     Active Substance: DEXAMETHASONE
     Dosage: UNK (UNKNOWN ROUTE)
     Dates: start: 202010, end: 202104
  21. DEXAMETHASONE [Suspect]
     Active Substance: DEXAMETHASONE
     Dosage: UNK (UNKNOWN ROUTE)
     Dates: start: 202112, end: 202206
  22. DEXAMETHASONE [Suspect]
     Active Substance: DEXAMETHASONE
     Dosage: UNK (UNKNOWN ROUTE)
     Dates: start: 202206
  23. CYCLOPHOSPHAMIDE [Suspect]
     Active Substance: CYCLOPHOSPHAMIDE
     Indication: Plasma cell myeloma
     Dosage: UNK, 16 CYCLES (UNKNOWN ROUTE)
     Dates: start: 2015, end: 201603
  24. CYCLOPHOSPHAMIDE [Suspect]
     Active Substance: CYCLOPHOSPHAMIDE
     Dosage: UNK (UNKNOWN ROUTE)
     Dates: start: 202206
  25. MELPHALAN [Suspect]
     Active Substance: MELPHALAN
     Indication: Plasma cell myeloma
     Dosage: UNK (UNKNOWN ROUTE)
     Dates: start: 202112, end: 202206

REACTIONS (2)
  - Plasma cell myeloma refractory [Unknown]
  - COVID-19 [Unknown]

NARRATIVE: CASE EVENT DATE: 20210101
